FAERS Safety Report 10029505 (Version 1)
Quarter: 2014Q1

REPORT INFORMATION
  Report Type: Spontaneous
  Country: US (occurrence: None)
  Receive Date: 20140320
  Receipt Date: 20140320
  Transmission Date: 20141002
  Serious: Yes (Other)
  Sender: FDA-Public Use
  Company Number: None

PATIENT
  Age: 61 Year
  Sex: Female
  Weight: 77.11 kg

DRUGS (2)
  1. TAMOXIFEN [Suspect]
     Indication: BREAST CANCER RECURRENT
     Dosage: ONCE DAILY
     Route: 048
     Dates: start: 1991, end: 1996
  2. TAMOXIFEN [Suspect]
     Indication: PROPHYLAXIS
     Dosage: ONCE DAILY
     Route: 048
     Dates: start: 1991, end: 1996

REACTIONS (2)
  - Skin odour abnormal [None]
  - Suicidal ideation [None]
